FAERS Safety Report 6480796-8 (Version None)
Quarter: 2009Q4

REPORT INFORMATION
  Report Type: 
  Country: None (occurrence: None)
  Receive Date: 20091123
  Receipt Date: 20091016
  Transmission Date: 20100525
  Serious: Yes (Hospitalization)
  Sender: FDA-Public Use
  Company Number: 8053424

PATIENT
  Age: 54 Year
  Sex: Male

DRUGS (21)
  1. CIMZIA [Suspect]
     Dosage: 400 MG 1/2W SC
     Route: 058
     Dates: start: 20090424, end: 20090511
  2. CIMZIA [Suspect]
     Dosage: 400 MG /M SC
     Route: 058
     Dates: start: 20090608
  3. MESALAMINE [Concomitant]
  4. BUDESONIDE [Concomitant]
  5. BACTRIM [Concomitant]
  6. ALBUTEROL [Concomitant]
  7. ALLEGRA [Concomitant]
  8. AMBIEN [Concomitant]
  9. CARVEDILOL [Concomitant]
  10. ENALAPRIL MALEATE [Concomitant]
  11. ENTOCORT EC [Concomitant]
  12. EPIPEN [Concomitant]
  13. REGLAN [Concomitant]
  14. IRON SULFATETHIAMIN COMPOUND TAB [Concomitant]
  15. IMITREX [Concomitant]
  16. NITROSTAT [Concomitant]
  17. NORCO [Concomitant]
  18. PROTONIX [Concomitant]
  19. PENTASA [Concomitant]
  20. SYMBICORT [Concomitant]
  21. LEVAQUIN [Concomitant]

REACTIONS (1)
  - CROHN'S DISEASE [None]
